FAERS Safety Report 20819636 (Version 2)
Quarter: 2022Q2

REPORT INFORMATION
  Report Type: Spontaneous
  Country: NL (occurrence: NL)
  Receive Date: 20220512
  Receipt Date: 20220527
  Transmission Date: 20220721
  Serious: Yes (Life-Threatening, Hospitalization)
  Sender: FDA-Public Use
  Company Number: NL-TEVA-2022-NL-2034990

PATIENT
  Age: 66 Year
  Sex: Male

DRUGS (10)
  1. VALGANCICLOVIR [Suspect]
     Active Substance: VALGANCICLOVIR
     Indication: Human herpesvirus 8 infection
     Route: 065
  2. VALGANCICLOVIR [Suspect]
     Active Substance: VALGANCICLOVIR
     Route: 065
     Dates: start: 202104
  3. COTRIMOXAZOLE [Concomitant]
     Active Substance: SULFAMETHOXAZOLE\TRIMETHOPRIM
     Indication: Prophylaxis
     Route: 065
  4. ENTECAVIR [Concomitant]
     Active Substance: ENTECAVIR
     Indication: Prophylaxis
     Route: 065
  5. PENICILLIN G [Concomitant]
     Active Substance: PENICILLIN G
     Indication: Prophylaxis
     Route: 065
  6. BASILIXIMAB [Concomitant]
     Active Substance: BASILIXIMAB
     Indication: Immunosuppressant drug therapy
     Route: 065
  7. TACROLIMUS [Concomitant]
     Active Substance: TACROLIMUS
     Indication: Immunosuppressant drug therapy
     Route: 065
  8. MYCOPHENOLATE MOFETIL [Concomitant]
     Active Substance: MYCOPHENOLATE MOFETIL
     Indication: Immunosuppressant drug therapy
     Route: 065
     Dates: end: 202104
  9. PREDNISOLONE [Concomitant]
     Active Substance: PREDNISOLONE
     Indication: Immunosuppressant drug therapy
     Route: 065
  10. METHYLPREDNISOLONE [Concomitant]
     Active Substance: METHYLPREDNISOLONE
     Indication: Transplant rejection
     Route: 065
     Dates: start: 202102

REACTIONS (1)
  - Drug ineffective [Unknown]
